FAERS Safety Report 5306140-7 (Version None)
Quarter: 2007Q2

REPORT INFORMATION
  Report Type: 
  Country: None (occurrence: None)
  Receive Date: 20070420
  Receipt Date: 20070420
  Transmission Date: 20071010
  Serious: Yes (Hospitalization)
  Sender: FDA-Public Use
  Company Number: None

PATIENT
  Age: 87 Year
  Sex: Male
  Weight: 75 kg

DRUGS (1)
  1. WARFARIN SODIUM [Suspect]
     Dosage: 5MG DAILY

REACTIONS (5)
  - ANAEMIA [None]
  - DIZZINESS [None]
  - EPISTAXIS [None]
  - INTERNATIONAL NORMALISED RATIO INCREASED [None]
  - RENAL FAILURE [None]
